FAERS Safety Report 5595068-3 (Version None)
Quarter: 2008Q1

REPORT INFORMATION
  Report Type: 
  Country: None (occurrence: None)
  Receive Date: 20080117
  Receipt Date: 20080111
  Transmission Date: 20080703
  Serious: Yes (Hospitalization)
  Sender: FDA-Public Use
  Company Number: SE-ASTRAZENECA-2008SE00243

PATIENT
  Age: 27412 Day
  Sex: Male

DRUGS (8)
  1. METOPROLOL SUCCINATE [Suspect]
     Indication: ESSENTIAL HYPERTENSION
     Route: 048
  2. ENALAPRIL MALEATE [Suspect]
     Indication: ESSENTIAL HYPERTENSION
     Route: 048
  3. OMEPRAZOLE [Concomitant]
  4. LASIX [Concomitant]
  5. NITROMEX [Concomitant]
     Route: 060
  6. PLENDIL [Concomitant]
  7. TROMBYL [Concomitant]
  8. NOVOLOG MIX 70/30 [Concomitant]

REACTIONS (1)
  - ORTHOSTATIC HYPOTENSION [None]
